FAERS Safety Report 5885627-2 (Version None)
Quarter: 2008Q3

REPORT INFORMATION
  Report Type: 
  Country: None (occurrence: None)
  Receive Date: 20080912
  Receipt Date: 20080904
  Transmission Date: 20090109
  Serious: Yes (Death)
  Sender: FDA-Public Use
  Company Number: OMPQ-UK-0809S-0762

PATIENT
  Age: 61 Year
  Sex: Female
  Weight: 75.5 kg

DRUGS (8)
  1. OMNIPAQUE 140 [Suspect]
     Indication: DRUG USE FOR UNKNOWN INDICATION
     Dosage: NR, SINGLE DOSE,
     Dates: start: 20080902, end: 20080902
  2. OMNIPAQUE 140 [Suspect]
  3. BENDROFLUMETHIAZIDE [Concomitant]
  4. ATENOLOL [Concomitant]
  5. SIMVASTATIN [Concomitant]
  6. RAMIPRIL [Concomitant]
  7. BUPIVACAINE (MARCAIN) [Concomitant]
  8. TRIAMCINALONE (KENALOG) [Concomitant]

REACTIONS (1)
  - ORGAN FAILURE [None]
